FAERS Safety Report 9633410 (Version 1)
Quarter: 2013Q4

REPORT INFORMATION
  Report Type: Spontaneous
  Country: US (occurrence: US)
  Receive Date: 20131021
  Receipt Date: 20131021
  Transmission Date: 20140711
  Serious: Yes (Other)
  Sender: FDA-Public Use
  Company Number: US-ELI_LILLY_AND_COMPANY-US201310003542

PATIENT
  Sex: Male

DRUGS (3)
  1. HUMALOG LISPRO [Suspect]
     Indication: TYPE 1 DIABETES MELLITUS
     Dosage: UNK
     Dates: start: 20130910
  2. HUMULIN NPH [Suspect]
  3. INSULIN HUMAN [Suspect]

REACTIONS (2)
  - Macular oedema [Unknown]
  - Visual acuity reduced [Not Recovered/Not Resolved]
